FAERS Safety Report 8919394 (Version 2)
Quarter: 2013Q1

REPORT INFORMATION
  Report Type: Spontaneous
  Country: US (occurrence: US)
  Receive Date: 20121121
  Receipt Date: 20130131
  Transmission Date: 20140127
  Serious: No
  Sender: FDA-Public Use
  Company Number: US-PFIZER INC-2012290485

PATIENT
  Age: 59 Year
  Sex: Male
  Weight: 54.42 kg

DRUGS (8)
  1. NEURONTIN [Suspect]
     Indication: SPINAL PAIN
     Dosage: 300 MG, 1X/DAY
     Route: 048
     Dates: start: 201210, end: 201211
  2. NEURONTIN [Suspect]
     Indication: BACK PAIN
  3. NEURONTIN [Suspect]
     Indication: SPINAL DISORDER
  4. NEURONTIN [Suspect]
     Indication: PAIN
  5. CYMBALTA [Suspect]
     Indication: MUSCLE DISORDER
     Dosage: UNK
     Dates: start: 201211, end: 201211
  6. CLOPIDOGREL [Concomitant]
     Indication: HYPERTENSION
     Dosage: UNK
  7. LISINOPRIL [Concomitant]
     Indication: HYPERTENSION
     Dosage: UNK
  8. TRAMADOL [Concomitant]
     Dosage: UNK

REACTIONS (5)
  - Feeling abnormal [Recovered/Resolved]
  - Discomfort [Recovered/Resolved]
  - Nausea [Recovered/Resolved]
  - Paraesthesia [Recovered/Resolved]
  - Malaise [Unknown]
